FAERS Safety Report 10662718 (Version 1)
Quarter: 2014Q4

REPORT INFORMATION
  Report Type: Spontaneous
  Country: US (occurrence: US)
  Receive Date: 20141218
  Receipt Date: 20141218
  Transmission Date: 20150529
  Serious: No
  Sender: FDA-Public Use
  Company Number: US-BAYER-2014-186067

PATIENT
  Age: 79 Year
  Sex: Male
  Weight: 68 kg

DRUGS (3)
  1. PROSCAR [Concomitant]
     Active Substance: FINASTERIDE
  2. ALEVE PM [Suspect]
     Active Substance: DIPHENHYDRAMINE HYDROCHLORIDE\NAPROXEN SODIUM
     Indication: SLEEP DISORDER THERAPY
     Dosage: 1 DF, PRN
     Route: 048
     Dates: start: 201412
  3. LUPRON [Concomitant]
     Active Substance: LEUPROLIDE ACETATE

REACTIONS (1)
  - Medication error [None]

NARRATIVE: CASE EVENT DATE: 201412
